FAERS Safety Report 17140231 (Version 3)
Quarter: 2020Q1

REPORT INFORMATION
  Report Type: Spontaneous
  Country: DK (occurrence: DK)
  Receive Date: 20191211
  Receipt Date: 20200224
  Transmission Date: 20200409
  Serious: Yes (Other)
  Sender: FDA-Public Use
  Company Number: NVSC2019DK029819

PATIENT
  Age: 42 Year
  Sex: Male

DRUGS (3)
  1. ITRACONAZOLE. [Suspect]
     Active Substance: ITRACONAZOLE
     Indication: TRICHOPHYTOSIS
     Dosage: UNK
     Route: 062
  2. TERBINAFINE. [Suspect]
     Active Substance: TERBINAFINE
     Dosage: UNK
     Route: 048
  3. TERBINAFINE. [Suspect]
     Active Substance: TERBINAFINE
     Indication: TRICHOPHYTOSIS
     Dosage: UNK (FIRST TERBINAFINE EXPOSURE BEFORE 1990; TOTAL DURATION }104 WEEKS)
     Route: 062

REACTIONS (4)
  - Pathogen resistance [Unknown]
  - Urticaria [Unknown]
  - Drug ineffective [Unknown]
  - Drug resistance [Unknown]
